FAERS Safety Report 5305797-4 (Version None)
Quarter: 2007Q2

REPORT INFORMATION
  Report Type: 
  Country: None (occurrence: None)
  Receive Date: 20070420
  Receipt Date: 20070420
  Transmission Date: 20071010
  Serious: Yes (Other)
  Sender: FDA-Public Use
  Company Number: None

PATIENT
  Age: 16 Day
  Sex: Male

DRUGS (1)
  1. TPN [Suspect]
     Indication: PREMATURE BABY
     Dosage: 128 ML, Q24H, IV
     Route: 042
     Dates: start: 20070328, end: 20070329

REACTIONS (3)
  - BLOOD GLUCOSE DECREASED [None]
  - MEDICATION ERROR [None]
  - NEONATAL DISORDER [None]
